FAERS Safety Report 4349480-0 (Version None)
Quarter: 2004Q2

REPORT INFORMATION
  Report Type: 
  Country: None (occurrence: None)
  Receive Date: 20040426
  Receipt Date: 20040413
  Transmission Date: 20050107
  Serious: Yes (Hospitalization)
  Sender: FDA-Public Use
  Company Number: 2004CG00706

PATIENT
  Age: 56 Year
  Sex: Male
  Weight: 67 kg

DRUGS (3)
  1. TENORMIN [Suspect]
     Indication: HYPERTENSION
     Dosage: 50 MG DAILY PO
     Route: 048
     Dates: start: 20030114, end: 20040214
  2. THALIDOMIDE [Suspect]
     Indication: CUTANEOUS SARCOIDOSIS
     Dosage: 50 MG DAILY PO
     Route: 048
     Dates: start: 20030605, end: 20040214
  3. CO-RENITEC [Concomitant]

REACTIONS (2)
  - ATRIOVENTRICULAR BLOCK SECOND DEGREE [None]
  - LOSS OF CONSCIOUSNESS [None]
